FAERS Safety Report 25295020 (Version 3)
Quarter: 2025Q3

REPORT INFORMATION
  Report Type: Spontaneous
  Country: US (occurrence: US)
  Receive Date: 20250511
  Receipt Date: 20250818
  Transmission Date: 20251021
  Serious: No
  Sender: SANOFI AVENTIS
  Company Number: US-SA-2025SA125235

PATIENT
  Age: 9 Year
  Sex: Male

DRUGS (2)
  1. DUPIXENT [Suspect]
     Active Substance: DUPILUMAB
     Indication: Asthma
     Dosage: 200 MG, QOW
     Route: 058
     Dates: start: 20250301
  2. CEFDINIR [Suspect]
     Active Substance: CEFDINIR

REACTIONS (3)
  - Dyspnoea [Unknown]
  - Therapeutic response shortened [Unknown]
  - Rash [Unknown]

NARRATIVE: CASE EVENT DATE: 20250101
